FAERS Safety Report 16809519 (Version 1)
Quarter: 2019Q3

REPORT INFORMATION
  Report Type: Spontaneous
  Country: US (occurrence: US)
  Receive Date: 20190916
  Receipt Date: 20190916
  Transmission Date: 20191005
  Serious: Yes (Other)
  Sender: FDA-Public Use
  Company Number: US-MYLANLABS-2019M1083852

PATIENT
  Sex: Female

DRUGS (3)
  1. EMSAM [Suspect]
     Active Substance: SELEGILINE
     Indication: PRODUCT USED FOR UNKNOWN INDICATION
     Dosage: 6 MILLIGRAM
     Route: 062
     Dates: start: 19160829
  2. EMSAM [Suspect]
     Active Substance: SELEGILINE
     Dosage: 12 MILLIGRAM
  3. EMSAM [Suspect]
     Active Substance: SELEGILINE
     Dosage: 9 MILLIGRAM

REACTIONS (1)
  - Weight decreased [Unknown]
